FAERS Safety Report 9187687 (Version 1)
Quarter: 2013Q1

REPORT INFORMATION
  Report Type: Spontaneous
  Country: US (occurrence: US)
  Receive Date: 20130325
  Receipt Date: 20130325
  Transmission Date: 20140127
  Serious: No
  Sender: FDA-Public Use
  Company Number: US-MYLANLABS-2009S1019572

PATIENT
  Age: 52 Year
  Sex: Male
  Weight: 96.62 kg

DRUGS (3)
  1. FENTANYL TRANSDERMAL SYSTEM [Suspect]
     Indication: NEUROPATHY PERIPHERAL
     Dosage: CHANGED Q. 72 HOURS.
     Route: 062
     Dates: start: 200910
  2. TRAZODONE [Concomitant]
     Indication: DEPRESSION
     Dosage: INSOMNIA
     Route: 048
     Dates: start: 200703
  3. ADDERALL [Concomitant]
     Indication: ATTENTION DEFICIT/HYPERACTIVITY DISORDER
     Route: 048
     Dates: start: 200905

REACTIONS (3)
  - Drug effect decreased [Not Recovered/Not Resolved]
  - Drug withdrawal syndrome [Not Recovered/Not Resolved]
  - Pain [Not Recovered/Not Resolved]
